FAERS Safety Report 12857062 (Version 6)
Quarter: 2017Q1

REPORT INFORMATION
  Report Type: Spontaneous
  Country: CN (occurrence: CN)
  Receive Date: 20161018
  Receipt Date: 20170130
  Transmission Date: 20170428
  Serious: Yes (Hospitalization)
  Sender: FDA-Public Use
  Company Number: CN-SA-2016SA185946

PATIENT
  Age: 83 Year
  Sex: Female
  Weight: 68 kg

DRUGS (2)
  1. LANTUS SOLOSTAR [Suspect]
     Active Substance: INSULIN GLARGINE
     Indication: DIABETES MELLITUS
     Route: 058
     Dates: start: 20161005, end: 20161005
  2. SOLOSTAR [Concomitant]
     Active Substance: DEVICE
     Dates: start: 20161005, end: 20161005

REACTIONS (4)
  - Rash generalised [Recovered/Resolved]
  - Pyrexia [Recovered/Resolved]
  - Injection site induration [Recovered/Resolved]
  - Pruritus [Recovered/Resolved]

NARRATIVE: CASE EVENT DATE: 20161005
